FAERS Safety Report 4331009-4 (Version None)
Quarter: 2004Q1

REPORT INFORMATION
  Report Type: 
  Country: None (occurrence: None)
  Receive Date: 20040331
  Receipt Date: 20040317
  Transmission Date: 20041129
  Serious: Yes (Other)
  Sender: FDA-Public Use
  Company Number: 2004018498

PATIENT
  Age: 44 Year
  Sex: Female

DRUGS (3)
  1. ZOLOFT [Suspect]
     Indication: DEPRESSION
     Dosage: 200 MG (DAILY), ORAL
     Route: 048
     Dates: start: 20030306
  2. NEURONTIN [Suspect]
     Indication: INSOMNIA
     Dosage: 1200 MG (DAILY), ORAL
     Route: 048
     Dates: start: 20031004
  3. ANTIFLAMMATORY/ANTIRHEUMATIC PRODUCTS [Concomitant]

REACTIONS (5)
  - AFFECTIVE DISORDER [None]
  - ARTHRALGIA [None]
  - DISEASE RECURRENCE [None]
  - INSOMNIA [None]
  - TONGUE NEOPLASM MALIGNANT STAGE UNSPECIFIED [None]
